FAERS Safety Report 7853518-3 (Version None)
Quarter: 2011Q4

REPORT INFORMATION
  Report Type: 
  Country: None (occurrence: None)
  Receive Date: 20111026
  Receipt Date: 20111015
  Transmission Date: 20120403
  Serious: Yes (Hospitalization)
  Sender: FDA-Public Use
  Company Number: US-BAYER-201014512NA

PATIENT
  Age: 37 Year
  Sex: Female
  Weight: 62 kg

DRUGS (4)
  1. CIPROFLOXACIN [Concomitant]
  2. OXYCODONE HCL AND ACETAMINOPHEN [Concomitant]
  3. YASMIN [Suspect]
     Indication: CONTRACEPTION
     Dosage: UNK
     Route: 048
     Dates: start: 20010401, end: 20090601
  4. YAZ [Suspect]
     Indication: CONTRACEPTION
     Dosage: UNK
     Route: 048
     Dates: start: 20010101, end: 20090601

REACTIONS (3)
  - GALLBLADDER DISORDER [None]
  - CHOLELITHIASIS [None]
  - CHOLECYSTITIS [None]
